FAERS Safety Report 17261340 (Version 1)
Quarter: 2020Q1

REPORT INFORMATION
  Report Type: Report from Study
  Country: BR (occurrence: BR)
  Receive Date: 20200113
  Receipt Date: 20200113
  Transmission Date: 20200409
  Serious: Yes (Other)
  Sender: FDA-Public Use
  Company Number: BR-UCBSA-2020001351

PATIENT
  Age: 46 Year
  Sex: Female
  Weight: 82 kg

DRUGS (5)
  1. METOTREXATO [METHOTREXATE] [Concomitant]
     Active Substance: METHOTREXATE
     Indication: RHEUMATOID ARTHRITIS
     Dosage: 5 DOSAGE FORM, WEEKLY (QW)
     Route: 048
  2. CALCIUM [Concomitant]
     Active Substance: CALCIUM
     Indication: RHEUMATOID ARTHRITIS
     Dosage: UNK
     Route: 048
  3. PREDNISONA [Concomitant]
     Active Substance: PREDNISONE
     Indication: RHEUMATOID ARTHRITIS
     Dosage: 5 MILLIGRAM, ONCE DAILY (QD)
     Route: 048
  4. CERTOLIZUMAB PEGOL RA [Suspect]
     Active Substance: CERTOLIZUMAB PEGOL
     Indication: RHEUMATOID ARTHRITIS
     Dosage: 400 MILLIGRAM, EV 2 WEEKS(QOW)
     Route: 058
  5. OMEPRAZOL [OMEPRAZOLE] [Concomitant]
     Active Substance: OMEPRAZOLE
     Indication: RHEUMATOID ARTHRITIS
     Dosage: UNK
     Route: 048

REACTIONS (6)
  - Paralysis [Recovered/Resolved]
  - Syncope [Recovered/Resolved]
  - Nodule [Recovered/Resolved]
  - Malaise [Recovered/Resolved]
  - Swelling [Recovered/Resolved]
  - Arthralgia [Recovered/Resolved]

NARRATIVE: CASE EVENT DATE: 201912
